FAERS Safety Report 7047149-5 (Version None)
Quarter: 2010Q4

REPORT INFORMATION
  Report Type: 
  Country: None (occurrence: None)
  Receive Date: 20101007
  Receipt Date: 20100928
  Transmission Date: 20110411
  Serious: Yes (Death, Hospitalization)
  Sender: FDA-Public Use
  Company Number: TCI2010A04091

PATIENT
  Age: 74 Year
  Sex: Male

DRUGS (3)
  1. ACTOS [Suspect]
     Indication: TYPE 2 DIABETES MELLITUS
     Dosage: 15 MG (15 MG, 1 D) PER ORAL; 30 MG (30 MG, 1 D) PER ORAL
     Route: 048
     Dates: start: 20080415
  2. ANGIOTENSIN II ANTAGONISTS [Concomitant]
  3. HMG COA REDUCTASE INHIBITORS [Concomitant]

REACTIONS (4)
  - BRAIN NATRIURETIC PEPTIDE INCREASED [None]
  - CARDIAC FAILURE [None]
  - DYSPNOEA [None]
  - PLEURAL EFFUSION [None]
